FAERS Safety Report 23472744 (Version 5)
Quarter: 2024Q3

REPORT INFORMATION
  Report Type: Report from Study
  Country: US (occurrence: US)
  Receive Date: 20240202
  Receipt Date: 20240705
  Transmission Date: 20241016
  Serious: Yes (Other)
  Sender: ABBVIE
  Company Number: US-ABBVIE-5617831

PATIENT
  Age: 71 Year
  Sex: Female

DRUGS (3)
  1. HUMIRA [Suspect]
     Active Substance: ADALIMUMAB
     Indication: Uveitis
     Dosage: FORM STRENGTH 40 MILLIGRAM, CITRATE FREE
     Route: 058
     Dates: start: 20230816
  2. HUMIRA [Suspect]
     Active Substance: ADALIMUMAB
     Dosage: CITRATE FREE, FORM STRENGTH: 40 MILLIGRAM
     Route: 058
     Dates: start: 20230816
  3. HUMIRA [Suspect]
     Active Substance: ADALIMUMAB
     Dosage: CITRATE FREE, FORM STRENGTH: 40 MILLIGRAM
     Route: 058

REACTIONS (16)
  - Retinal vascular occlusion [Unknown]
  - Unevaluable event [Unknown]
  - Mood altered [Unknown]
  - Anxiety [Unknown]
  - Uveitis [Unknown]
  - Renal function test abnormal [Recovering/Resolving]
  - Immune system disorder [Recovering/Resolving]
  - Inflammation [Recovering/Resolving]
  - Stress [Unknown]
  - Gastrointestinal disorder [Unknown]
  - Arterial insufficiency [Unknown]
  - Blindness unilateral [Unknown]
  - Feeling cold [Unknown]
  - Abdominal discomfort [Unknown]
  - Headache [Unknown]
  - Eye haemorrhage [Unknown]

NARRATIVE: CASE EVENT DATE: 20230816
